FAERS Safety Report 4336549-X (Version None)
Quarter: 2004Q2

REPORT INFORMATION
  Report Type: 
  Country: None (occurrence: None)
  Receive Date: 20040407
  Receipt Date: 20040324
  Transmission Date: 20050107
  Serious: Yes (Death)
  Sender: FDA-Public Use
  Company Number: USA-2004-0014036

PATIENT
  Age: 83 Year
  Sex: Male

DRUGS (5)
  1. SPECTRACEF [Suspect]
     Indication: PNEUMONIA
     Dosage: 200 MG, BID, ORAL
     Route: 048
     Dates: start: 20040308, end: 20040308
  2. NORVASC [Concomitant]
  3. FLOMAX [Concomitant]
  4. ALBUTEROL SULFATE (SALBUTAMOL SULFATE) [Concomitant]
  5. VICODIN [Concomitant]

REACTIONS (2)
  - ANEURYSM RUPTURED [None]
  - REFUSAL OF TREATMENT BY PATIENT [None]
